FAERS Safety Report 19446962 (Version 1)
Quarter: 2021Q2

REPORT INFORMATION
  Report Type: Spontaneous
  Country: US (occurrence: US)
  Receive Date: 20210622
  Receipt Date: 20210622
  Transmission Date: 20210717
  Serious: No
  Sender: FDA-Public Use
  Company Number: US-HIKMA PHARMACEUTICALS USA INC.-US-H14001-20-02256

PATIENT
  Sex: Male

DRUGS (2)
  1. FLUTICASONE. [Suspect]
     Active Substance: FLUTICASONE
     Indication: HEADACHE
     Route: 045
     Dates: start: 20200430
  2. FLUTICASONE. [Suspect]
     Active Substance: FLUTICASONE
     Indication: RHINORRHOEA

REACTIONS (5)
  - Underdose [Unknown]
  - Lacrimation increased [Not Recovered/Not Resolved]
  - Accidental exposure to product [Unknown]
  - Eye irritation [Recovered/Resolved]
  - Off label use [Not Recovered/Not Resolved]
